FAERS Safety Report 6699035-8 (Version None)
Quarter: 2010Q2

REPORT INFORMATION
  Report Type: 
  Country: None (occurrence: None)
  Receive Date: 20100427
  Receipt Date: 20100421
  Transmission Date: 20101027
  Serious: Yes (Death, Hospitalization)
  Sender: FDA-Public Use
  Company Number: US-BRISTOL-MYERS SQUIBB COMPANY-15074891

PATIENT
  Age: 62 Year
  Sex: Male
  Weight: 111 kg

DRUGS (14)
  1. CISPLATIN [Suspect]
     Indication: HEAD AND NECK CANCER
     Dosage: 1DF:7MG/ML INTERRUPTED ON 20JUL2009
  2. RADIOTHERAPY [Suspect]
     Indication: HEAD AND NECK CANCER
  3. TRIAMTERENE [Concomitant]
  4. LIPITOR [Concomitant]
  5. ARTHROTEC [Concomitant]
     Dosage: 00372302
  6. GLUCOSAMINE [Concomitant]
  7. CHONDROITIN [Concomitant]
  8. ZIAC [Concomitant]
     Dosage: 01166101
  9. ASCORBIC ACID [Concomitant]
  10. CALCIUM + VITAMIN D [Concomitant]
  11. FISH OIL [Concomitant]
  12. DICLOFENAC [Concomitant]
  13. ONDANSETRON [Concomitant]
  14. OXYCODONE [Concomitant]

REACTIONS (3)
  - ACUTE MYOCARDIAL INFARCTION [None]
  - DEATH [None]
  - RENAL FAILURE ACUTE [None]
